FAERS Safety Report 10287095 (Version 6)
Quarter: 2015Q4

REPORT INFORMATION
  Report Type: Spontaneous
  Country: QA (occurrence: QA)
  Receive Date: 20140709
  Receipt Date: 20151105
  Transmission Date: 20160304
  Serious: Yes (Death, Hospitalization, Other)
  Sender: FDA-Public Use
  Company Number: QA-JNJFOC-20140702777

PATIENT
  Age: 63 Year
  Sex: Male

DRUGS (3)
  1. SOFOSBUVIR [Suspect]
     Active Substance: SOFOSBUVIR
     Indication: HEPATITIS C
     Route: 065
     Dates: start: 20140527, end: 20140712
  2. RIBAVIRIN. [Suspect]
     Active Substance: RIBAVIRIN
     Indication: HEPATITIS C
  3. SIMEPREVIR [Suspect]
     Active Substance: SIMEPREVIR
     Indication: HEPATITIS C
     Route: 048
     Dates: start: 20140527, end: 20140712

REACTIONS (8)
  - Multi-organ failure [Fatal]
  - Photosensitivity reaction [Unknown]
  - Acute hepatic failure [Unknown]
  - Hepatic cirrhosis [Unknown]
  - Ascites [Unknown]
  - Pruritus [Unknown]
  - Off label use [Unknown]
  - Jaundice [Not Recovered/Not Resolved]

NARRATIVE: CASE EVENT DATE: 20140702
